FAERS Safety Report 25925721 (Version 1)
Quarter: 2025Q4

REPORT INFORMATION
  Report Type: Spontaneous
  Country: US (occurrence: US)
  Receive Date: 20251015
  Receipt Date: 20251015
  Transmission Date: 20260117
  Serious: Yes (Other)
  Sender: INCYTE
  Company Number: US-INCYTE CORPORATION-2025IN011279

PATIENT
  Age: 65 Year

DRUGS (3)
  1. JAKAFI [Suspect]
     Active Substance: RUXOLITINIB
     Indication: Lung neoplasm malignant
     Dosage: 10 MILLIGRAM, BID
  2. JAKAFI [Suspect]
     Active Substance: RUXOLITINIB
     Indication: Essential thrombocythaemia
  3. JAKAFI [Suspect]
     Active Substance: RUXOLITINIB
     Indication: Polycythaemia vera

REACTIONS (7)
  - Metastasis [Unknown]
  - Nausea [Unknown]
  - Fatigue [Unknown]
  - Emotional disorder [Unknown]
  - General physical health deterioration [Unknown]
  - Social avoidant behaviour [Unknown]
  - Off label use [Unknown]
